FAERS Safety Report 7274287-4 (Version None)
Quarter: 2011Q1

REPORT INFORMATION
  Report Type: 
  Country: None (occurrence: None)
  Receive Date: 20110204
  Receipt Date: 20110128
  Transmission Date: 20110831
  Serious: Yes (Hospitalization, Other)
  Sender: FDA-Public Use
  Company Number: US-TEVA-265147USA

PATIENT
  Sex: Female

DRUGS (4)
  1. PRISTIQ [Concomitant]
     Indication: DEPRESSION
  2. CLARAVIS [Suspect]
  3. ZOLPIDEM TARTRATE [Concomitant]
     Indication: SLEEP DISORDER
  4. CILEST [Concomitant]

REACTIONS (6)
  - OROPHARYNGEAL PAIN [None]
  - NAUSEA [None]
  - PYREXIA [None]
  - VOMITING [None]
  - RENAL FAILURE ACUTE [None]
  - VIRAL INFECTION [None]
